FAERS Safety Report 18705191 (Version 2)
Quarter: 2021Q1

REPORT INFORMATION
  Report Type: Spontaneous
  Country: IT (occurrence: IT)
  Receive Date: 20210106
  Receipt Date: 20210111
  Transmission Date: 20210419
  Serious: Yes (Life-Threatening)
  Sender: FDA-Public Use
  Company Number: IT-TEVA-2020-IT-1864422

PATIENT
  Age: 56 Year
  Sex: Male
  Weight: 72 kg

DRUGS (11)
  1. CISPLATINO SANDOZ [Suspect]
     Active Substance: CISPLATIN
     Indication: BILIARY NEOPLASM
     Dosage: UNIT DOSE : 25 MG/M2
     Route: 042
     Dates: start: 20200120
  2. LASIX [Concomitant]
     Active Substance: FUROSEMIDE
  3. DEURSIL [Concomitant]
     Active Substance: URSODIOL
  4. EMEND [Concomitant]
     Active Substance: APREPITANT
  5. MORPHINE SULFATE. [Concomitant]
     Active Substance: MORPHINE SULFATE
  6. PANTOPRAZOLE [Concomitant]
     Active Substance: PANTOPRAZOLE
  7. ONDANSETRON HYDROCHLORIDE. [Concomitant]
     Active Substance: ONDANSETRON HYDROCHLORIDE
  8. CETIRIZINE [Concomitant]
     Active Substance: CETIRIZINE HYDROCHLORIDE
  9. DIAZEPAM. [Concomitant]
     Active Substance: DIAZEPAM
  10. GEMSOL [Suspect]
     Active Substance: GEMCITABINE HYDROCHLORIDE
     Indication: BILIARY NEOPLASM
     Dosage: UNIT DOSE : 1000 MG/M2
     Route: 042
     Dates: start: 20200120
  11. SOLDESAM [Concomitant]
     Active Substance: DEXAMETHASONE

REACTIONS (2)
  - Thrombocytopenia [Recovered/Resolved]
  - Neutropenia [Recovered/Resolved]

NARRATIVE: CASE EVENT DATE: 20201013
